FAERS Safety Report 12612628 (Version 2)
Quarter: 2016Q3

REPORT INFORMATION
  Report Type: Spontaneous
  Country: BE (occurrence: BE)
  Receive Date: 20160801
  Receipt Date: 20160831
  Transmission Date: 20161109
  Serious: Yes (Death, Life-Threatening, Other)
  Sender: FDA-Public Use
  Company Number: BE-ALLERGAN-1640645

PATIENT
  Age: 59 Year
  Sex: Female
  Weight: 75 kg

DRUGS (3)
  1. AMIKACIN [Concomitant]
     Active Substance: AMIKACIN
     Indication: PRODUCT USED FOR UNKNOWN INDICATION
     Dosage: UNK
     Route: 065
     Dates: start: 19910905, end: 19910909
  2. ULCOGANT ORAL SUSPENSION [Suspect]
     Active Substance: SUCRALFATE
     Indication: PROPHYLAXIS AGAINST GASTROINTESTINAL ULCER
     Dosage: 5 ML, UNK, Q4H
     Route: 033
     Dates: start: 19910905, end: 19910915
  3. ULCOGANT ORAL SUSPENSION [Suspect]
     Active Substance: SUCRALFATE
     Indication: ILL-DEFINED DISORDER

REACTIONS (4)
  - Gastric perforation [Unknown]
  - Death [Fatal]
  - Drug administration error [Unknown]
  - Renal failure [Fatal]

NARRATIVE: CASE EVENT DATE: 19910916
